FAERS Safety Report 6367433-8 (Version None)
Quarter: 2009Q3

REPORT INFORMATION
  Report Type: 
  Country: None (occurrence: None)
  Receive Date: 20090921
  Receipt Date: 20090914
  Transmission Date: 20100115
  Serious: Yes (Other)
  Sender: FDA-Public Use
  Company Number: A0808122A

PATIENT
  Sex: Female
  Weight: 72 kg

DRUGS (4)
  1. SERETIDE [Suspect]
     Indication: ASTHMA
     Dosage: 2PUFF PER DAY
     Route: 055
     Dates: start: 20090701
  2. SINGULAIR [Concomitant]
     Dosage: 1TAB PER DAY
     Route: 048
     Dates: start: 20090909
  3. AMINOPHYLLINE [Concomitant]
     Dosage: 2TAB PER DAY
     Route: 048
     Dates: start: 20090909
  4. AVAMYS [Concomitant]
     Dosage: 1PUFF TWICE PER DAY
     Route: 045
     Dates: start: 20090701

REACTIONS (2)
  - APNOEA [None]
  - COUGH [None]
